FAERS Safety Report 25459564 (Version 2)
Quarter: 2025Q2

REPORT INFORMATION
  Report Type: Spontaneous
  Country: RU (occurrence: RU)
  Receive Date: 20250620
  Receipt Date: 20250627
  Transmission Date: 20250716
  Serious: Yes (Other)
  Sender: IPSEN BIOPHARMACEUTICALS, INC.
  Company Number: RU-IPSEN Group, Research and Development-2025-09603

PATIENT
  Age: 12 Year
  Sex: Male

DRUGS (5)
  1. SOHONOS [Suspect]
     Active Substance: PALOVAROTENE
     Indication: Fibrodysplasia ossificans progressiva
     Route: 065
     Dates: start: 202305
  2. SOHONOS [Suspect]
     Active Substance: PALOVAROTENE
     Route: 065
     Dates: start: 202311
  3. TOFACITINIB [Suspect]
     Active Substance: TOFACITINIB
     Indication: Fibrodysplasia ossificans progressiva
     Dates: start: 202405
  4. TOFACITINIB [Suspect]
     Active Substance: TOFACITINIB
     Dates: start: 202504
  5. TOFACITINIB [Suspect]
     Active Substance: TOFACITINIB
     Dates: start: 202305

REACTIONS (5)
  - Deafness neurosensory [Unknown]
  - Extraskeletal ossification [Unknown]
  - Rash pruritic [Unknown]
  - Dry skin [Unknown]
  - Condition aggravated [Unknown]

NARRATIVE: CASE EVENT DATE: 20230601
